FAERS Safety Report 10602324 (Version 1)
Quarter: 2014Q4

REPORT INFORMATION
  Report Type: Spontaneous
  Country: US (occurrence: US)
  Receive Date: 20141124
  Receipt Date: 20141124
  Transmission Date: 20150529
  Serious: Yes (Life-Threatening)
  Sender: FDA-Public Use
  Company Number: US-ROXANE LABORATORIES, INC.-2014-RO-01759RO

PATIENT
  Age: 53 Year
  Sex: Male

DRUGS (1)
  1. CITALOPRAM [Suspect]
     Active Substance: CITALOPRAM HYDROBROMIDE
     Indication: PRODUCT USED FOR UNKNOWN INDICATION
     Dosage: 2400 MG
     Route: 065

REACTIONS (8)
  - Neurotoxicity [None]
  - Pulmonary oedema [Recovered/Resolved]
  - Metabolic acidosis [Recovered/Resolved]
  - Serotonin syndrome [Recovered/Resolved]
  - Generalised tonic-clonic seizure [Recovered/Resolved]
  - Intentional overdose [None]
  - Acute respiratory distress syndrome [Recovered/Resolved]
  - Respiratory acidosis [None]
